FAERS Safety Report 6257717-6 (Version None)
Quarter: 2009Q3

REPORT INFORMATION
  Report Type: 
  Country: None (occurrence: None)
  Receive Date: 20090706
  Receipt Date: 20090626
  Transmission Date: 20100115
  Serious: Yes (Other)
  Sender: FDA-Public Use
  Company Number: AU-ASTRAZENECA-2009AP02838

PATIENT
  Age: 55 Year
  Sex: Female

DRUGS (2)
  1. NEXIUM [Suspect]
     Indication: PROPHYLAXIS
     Route: 048
     Dates: start: 20090403, end: 20090408
  2. DISPRIN MAX [Suspect]
     Indication: PAIN
     Dosage: PATIENT TOOK 4 DOSES
     Route: 065
     Dates: start: 20090403, end: 20090408

REACTIONS (2)
  - CHAPPED LIPS [None]
  - LIP SWELLING [None]
